FAERS Safety Report 8610862-X (Version None)
Quarter: 2012Q3

REPORT INFORMATION
  Report Type: 
  Country: None (occurrence: None)
  Receive Date: 20120822
  Receipt Date: 20120810
  Transmission Date: 20120928
  Serious: Yes (Other)
  Sender: FDA-Public Use
  Company Number: JP-ELI_LILLY_AND_COMPANY-JP201203002458

PATIENT
  Sex: Male

DRUGS (1)
  1. FORTEO [Suspect]
     Dosage: UNK
     Route: 058
     Dates: start: 20120203, end: 20120101

REACTIONS (6)
  - CHOLELITHIASIS [None]
  - GASTRIC CANCER [None]
  - INJECTION SITE HAEMATOMA [None]
  - MEDICATION ERROR [None]
  - IRON DEFICIENCY ANAEMIA [None]
  - HAEMATURIA [None]
